FAERS Safety Report 5826490-5 (Version None)
Quarter: 2008Q3

REPORT INFORMATION
  Report Type: 
  Country: None (occurrence: None)
  Receive Date: 20080724
  Receipt Date: 20080722
  Transmission Date: 20090109
  Serious: Yes (Other)
  Sender: FDA-Public Use
  Company Number: GP-08-07-0007

PATIENT
  Age: 1 Hour
  Sex: Female
  Weight: 2.2 kg

DRUGS (4)
  1. ONDANSETRON [Suspect]
     Indication: CHOLESTASIS
     Dosage: 4 MG, B.I.D., P.O.
     Route: 048
  2. CITALOPRAM 40 MG [Concomitant]
  3. RANITIDINE 150 MG [Concomitant]
  4. UROSODIOL 900 MG [Concomitant]

REACTIONS (7)
  - EXTRAPYRAMIDAL DISORDER [None]
  - HYPERTONIA NEONATAL [None]
  - MATERNAL DRUGS AFFECTING FOETUS [None]
  - NEONATAL DISORDER [None]
  - PREMATURE BABY [None]
  - RESPIRATORY DISORDER NEONATAL [None]
  - TARDIVE DYSKINESIA [None]
